FAERS Safety Report 20235358 (Version 1)
Quarter: 2021Q4

REPORT INFORMATION
  Report Type: Spontaneous
  Country: FR (occurrence: FR)
  Receive Date: 20211228
  Receipt Date: 20211228
  Transmission Date: 20220303
  Serious: Yes (Hospitalization)
  Sender: FDA-Public Use
  Company Number: FR-AFSSAPS-AN20214632

PATIENT
  Age: 19 Year
  Sex: Male

DRUGS (4)
  1. PANTOPRAZOLE [Suspect]
     Active Substance: PANTOPRAZOLE
     Indication: Gastrointestinal haemorrhage
     Dosage: 192 MILLIGRAM, 1DOSE/24HOUR
     Route: 042
     Dates: start: 20210728, end: 20210731
  2. ACETAMINOPHEN [Concomitant]
     Active Substance: ACETAMINOPHEN
     Indication: Product used for unknown indication
     Dosage: AS NECESSARY
     Route: 042
     Dates: start: 20210729, end: 20210729
  3. VALPROATE SODIUM [Concomitant]
     Active Substance: VALPROATE SODIUM
     Indication: Product used for unknown indication
     Dosage: 500 MILLIGRAM, DAILY
     Route: 048
  4. TRIMEBUTINE [Concomitant]
     Active Substance: TRIMEBUTINE
     Indication: Product used for unknown indication
     Dosage: 300 MILLIGRAM, DAILY
     Route: 042
     Dates: start: 20210729

REACTIONS (1)
  - Thrombocytopenia [Recovered/Resolved]

NARRATIVE: CASE EVENT DATE: 20210731
